FAERS Safety Report 8392294-5 (Version None)
Quarter: 2012Q2

REPORT INFORMATION
  Report Type: 
  Country: None (occurrence: None)
  Receive Date: 20120529
  Receipt Date: 20120521
  Transmission Date: 20120825
  Serious: Yes (Other)
  Sender: FDA-Public Use
  Company Number: GB-ABBOTT-12P-167-0926255-00

PATIENT
  Age: 80 Year
  Sex: Male

DRUGS (4)
  1. TAMSULOSIN HCL [Concomitant]
     Indication: PRODUCT USED FOR UNKNOWN INDICATION
  2. BECONASE [Concomitant]
     Indication: ASTHMA
     Route: 055
     Dates: start: 20040721
  3. LEUPROLIDE ACETATE [Suspect]
     Indication: PROSTATE CANCER
     Route: 058
     Dates: start: 20120309
  4. FLUTICASONE PROPIONATE/SALMETEROL [Concomitant]
     Indication: ASTHMA
     Route: 055
     Dates: start: 20100729

REACTIONS (5)
  - OFF LABEL USE [None]
  - SKIN ULCER [None]
  - ABDOMINAL ABSCESS [None]
  - INJECTION SITE EXTRAVASATION [None]
  - INJECTION SITE ABSCESS [None]
